FAERS Safety Report 25659187 (Version 1)
Quarter: 2025Q3

REPORT INFORMATION
  Report Type: Report from Study
  Country: US (occurrence: US)
  Receive Date: 20250808
  Receipt Date: 20250808
  Transmission Date: 20251020
  Serious: No
  Sender: SUNOVION
  Company Number: US-SUMITOMO PHARMA SWITZERLAND GMBH-2025SPA002088

PATIENT
  Age: 83 Year
  Sex: Male

DRUGS (9)
  1. ORGOVYX [Suspect]
     Active Substance: RELUGOLIX
     Indication: Prostate cancer
     Dosage: 360 MG, SINGLE
     Route: 048
     Dates: start: 20250216, end: 20250216
  2. ORGOVYX [Suspect]
     Active Substance: RELUGOLIX
     Dosage: 120 MG, QD
     Route: 048
     Dates: start: 20250217
  3. TAMSULOSIN [Concomitant]
     Active Substance: TAMSULOSIN
  4. GABAPENTIN [Concomitant]
     Active Substance: GABAPENTIN
  5. XARELTO [Concomitant]
     Active Substance: RIVAROXABAN
  6. METOPROLOL SUCCINATE [Concomitant]
     Active Substance: METOPROLOL SUCCINATE
  7. ISOSORBIDE MONONITRATE [Concomitant]
     Active Substance: ISOSORBIDE MONONITRATE
  8. ASPIRIN [Concomitant]
     Active Substance: ASPIRIN
  9. Vitamin k2 + d3 [Concomitant]

REACTIONS (10)
  - Cold sweat [Unknown]
  - Pain [Unknown]
  - Oropharyngeal pain [Unknown]
  - Tremor [Recovered/Resolved]
  - Muscular weakness [Recovered/Resolved]
  - Hot flush [Unknown]
  - Back pain [Recovered/Resolved]
  - Fatigue [Unknown]
  - Headache [Unknown]
  - Hyperhidrosis [Unknown]
